FAERS Safety Report 9037863 (Version 1)
Quarter: 2013Q1

REPORT INFORMATION
  Report Type: Report from Study
  Country: US (occurrence: US)
  Receive Date: 20130129
  Receipt Date: 20130129
  Transmission Date: 20140127
  Serious: No
  Sender: FDA-Public Use
  Company Number: US-ABBOTT-11P-163-0879402-00

PATIENT
  Age: 80 Year
  Sex: Female

DRUGS (9)
  1. HUMIRA 40 MG/0.8 ML PEN [Suspect]
     Indication: CROHN^S DISEASE
     Dates: start: 20110711, end: 20111125
  2. PREDNISONE [Concomitant]
     Indication: CROHN^S DISEASE
  3. AMLODIPINE [Concomitant]
     Indication: HYPERTENSION
  4. LISINOPRIL [Concomitant]
     Indication: HYPERTENSION
  5. IMODIUM [Concomitant]
     Indication: DIARRHOEA
  6. NEXIUM [Concomitant]
     Indication: GASTRIC DISORDER
  7. NEXIUM [Concomitant]
     Indication: HIATUS HERNIA
  8. B12 [Concomitant]
     Indication: FATIGUE
  9. VIT D [Concomitant]
     Indication: PRODUCT USED FOR UNKNOWN INDICATION

REACTIONS (12)
  - Nasopharyngitis [Recovering/Resolving]
  - Dyspnoea [Recovering/Resolving]
  - Increased tendency to bruise [Not Recovered/Not Resolved]
  - Cough [Recovering/Resolving]
  - Chest discomfort [Recovering/Resolving]
  - Dyspnoea exertional [Unknown]
  - Oropharyngeal pain [Unknown]
  - Dysphonia [Unknown]
  - Fatigue [Unknown]
  - Tooth disorder [Unknown]
  - Infection [Not Recovered/Not Resolved]
  - Chest discomfort [Not Recovered/Not Resolved]
